FAERS Safety Report 11855881 (Version 1)
Quarter: 2015Q4

REPORT INFORMATION
  Report Type: Report from Study
  Country: FR (occurrence: FR)
  Receive Date: 20151221
  Receipt Date: 20151221
  Transmission Date: 20160305
  Serious: Yes (Hospitalization)
  Sender: FDA-Public Use
  Company Number: FR-IPSEN BIOPHARMACEUTICALS, INC.-2013-4319

PATIENT
  Age: 12 Year
  Sex: Male
  Weight: 33 kg

DRUGS (7)
  1. NORDITROPIN [Concomitant]
     Active Substance: SOMATROPIN
  2. INCRELEX [Suspect]
     Active Substance: MECASERMIN
     Indication: NOONAN SYNDROME
     Dosage: 100 MICROG/KG
     Route: 058
     Dates: start: 20101026
  3. NORDITROPIN [Concomitant]
     Active Substance: SOMATROPIN
     Indication: PRODUCT USED FOR UNKNOWN INDICATION
  4. INCRELEX [Suspect]
     Active Substance: MECASERMIN
     Indication: PRIMARY INSULIN LIKE GROWTH FACTOR-1 DEFICIENCY
     Dosage: 240 MICROG/KG
     Route: 058
     Dates: start: 20110119
  5. NORDITROPIN [Concomitant]
     Active Substance: SOMATROPIN
  6. INCRELEX [Suspect]
     Active Substance: MECASERMIN
     Indication: PRODUCT USE ISSUE
     Dosage: 240 MICROG/KG
     Route: 058
     Dates: start: 20110803, end: 2012
  7. FEMARA [Concomitant]
     Active Substance: LETROZOLE
     Indication: PRODUCT USED FOR UNKNOWN INDICATION

REACTIONS (3)
  - Scoliosis [Not Recovered/Not Resolved]
  - Arthralgia [Recovered/Resolved]
  - Condition aggravated [Not Recovered/Not Resolved]

NARRATIVE: CASE EVENT DATE: 20110119
